APPROVED DRUG PRODUCT: HYDROCODONE BITARTRATE AND PSEUDOEPHEDRINE HYDROCHLORIDE
Active Ingredient: HYDROCODONE BITARTRATE; PSEUDOEPHEDRINE HYDROCHLORIDE
Strength: 5MG/5ML;60MG/5ML
Dosage Form/Route: SOLUTION;ORAL
Application: A206661 | Product #001
Applicant: SCIEGEN PHARMACEUTICALS INC
Approved: Jan 23, 2019 | RLD: No | RS: No | Type: DISCN